FAERS Safety Report 9462619 (Version 1)
Quarter: 2013Q3

REPORT INFORMATION
  Report Type: Report from Study
  Country: US (occurrence: US)
  Receive Date: 20130816
  Receipt Date: 20130816
  Transmission Date: 20140515
  Serious: Yes (Hospitalization)
  Sender: FDA-Public Use
  Company Number: US-BAYER-2013-092233

PATIENT
  Age: 73 Year
  Sex: Male

DRUGS (1)
  1. STIVARGA [Suspect]
     Indication: COLON CANCER
     Dosage: 160 MG, QD
     Route: 048
     Dates: start: 20130723, end: 20130804

REACTIONS (5)
  - Gastrointestinal ulcer perforation [None]
  - Oesophageal injury [None]
  - Haematemesis [Recovered/Resolved]
  - Dysphonia [Not Recovered/Not Resolved]
  - Haematochezia [Recovered/Resolved]
